FAERS Safety Report 7603922-3 (Version None)
Quarter: 2011Q3

REPORT INFORMATION
  Report Type: 
  Country: None (occurrence: None)
  Receive Date: 20110712
  Receipt Date: 20110706
  Transmission Date: 20111222
  Serious: Yes (Other)
  Sender: FDA-Public Use
  Company Number: US-ROCHE-759617

PATIENT
  Sex: Female

DRUGS (4)
  1. BONIVA [Suspect]
     Route: 065
     Dates: start: 20070101, end: 20080601
  2. VASOTEC [Concomitant]
     Indication: HYPERTENSION
     Dates: start: 19850101
  3. TAMOXIFEN CITRATE [Concomitant]
     Indication: BREAST CANCER
  4. LOVENOX [Concomitant]

REACTIONS (3)
  - DRUG INEFFECTIVE [None]
  - CATARACT OPERATION [None]
  - PAIN [None]
